FAERS Safety Report 20411463 (Version 1)
Quarter: 2022Q1

REPORT INFORMATION
  Report Type: Spontaneous
  Country: US (occurrence: None)
  Receive Date: 20220201
  Receipt Date: 20220201
  Transmission Date: 20220423
  Serious: No
  Sender: FDA-Public Use
  Company Number: None

PATIENT
  Age: 72 Year
  Sex: Female

DRUGS (1)
  1. SOTROVIMAB [Suspect]
     Active Substance: SOTROVIMAB
     Indication: COVID-19 treatment

REACTIONS (4)
  - Dysphagia [None]
  - Infusion related reaction [None]
  - Panic reaction [None]
  - Speech disorder [None]

NARRATIVE: CASE EVENT DATE: 20220128
